FAERS Safety Report 9674282 (Version 4)
Quarter: 2014Q2

REPORT INFORMATION
  Report Type: Report from Study
  Country: DE (occurrence: DE)
  Receive Date: 20131107
  Receipt Date: 20140509
  Transmission Date: 20141212
  Serious: Yes (Hospitalization)
  Sender: FDA-Public Use
  Company Number: DE-MERCK-1311DEU001500

PATIENT
  Age: 8 Year
  Sex: Female
  Weight: 21.8 kg

DRUGS (4)
  1. VORINOSTAT [Suspect]
     Indication: NEOPLASM
     Dosage: SUSPENSION 230 MG/D
     Dates: start: 20131009, end: 20131101
  2. DEXAMETHASONE [Concomitant]
     Indication: NEOPLASM SWELLING
     Dosage: 2 X 1MG
     Route: 048
     Dates: start: 20131029, end: 20131101
  3. RANITIDINE [Concomitant]
     Indication: SUPPORTIVE CARE
     Dosage: 2 X 75 MG
     Route: 048
     Dates: start: 20130927, end: 20131101
  4. SULFAMETHOXAZOLE (+) TRIMETHOPRIM [Concomitant]
     Indication: SUPPORTIVE CARE
     Dosage: 720 MG FR, JU, LU
     Dates: start: 20131016, end: 20131101

REACTIONS (1)
  - Herpes virus infection [Recovered/Resolved]
